FAERS Safety Report 8406792-9 (Version None)
Quarter: 2012Q2

REPORT INFORMATION
  Report Type: 
  Country: None (occurrence: None)
  Receive Date: 20120604
  Receipt Date: 20120603
  Transmission Date: 20120825
  Serious: Yes (Other)
  Sender: FDA-Public Use
  Company Number: US-PFIZER INC-2012132760

PATIENT
  Sex: Male

DRUGS (3)
  1. CHANTIX [Suspect]
     Indication: SMOKING CESSATION THERAPY
     Dosage: 0.5 MG, DAILY
     Route: 048
     Dates: start: 20120501, end: 20120501
  2. CHANTIX [Suspect]
     Dosage: 1 MG, 2X/DAY
     Route: 048
     Dates: start: 20120501
  3. LISINOPRIL [Concomitant]
     Indication: BLOOD PRESSURE ABNORMAL
     Dosage: 10 MG, DAILY

REACTIONS (4)
  - THINKING ABNORMAL [None]
  - ILLUSION [None]
  - ANXIETY [None]
  - MENTAL DISORDER [None]
